FAERS Safety Report 19018822 (Version 1)
Quarter: 2021Q1

REPORT INFORMATION
  Report Type: Spontaneous
  Country: US (occurrence: US)
  Receive Date: 20210317
  Receipt Date: 20210317
  Transmission Date: 20210420
  Serious: No
  Sender: FDA-Public Use
  Company Number: US-JNJFOC-20210314949

PATIENT
  Sex: Female
  Weight: 60.3 kg

DRUGS (5)
  1. TYLENOL [Suspect]
     Active Substance: ACETAMINOPHEN
     Indication: PAIN IN EXTREMITY
     Route: 065
  2. HABITROL PATCH NICOTINE TRANSDERMAL SYSTEM, STEP 1 [Concomitant]
     Active Substance: NICOTINE
     Indication: SMOKING CESSATION THERAPY
     Dosage: 1 PATCH DAILY
     Route: 065
  3. LOSARTAN 25 MG [Concomitant]
     Active Substance: LOSARTAN
     Indication: PRODUCT USED FOR UNKNOWN INDICATION
     Route: 065
  4. HYDROCHLOROTHIAZIDE 25MG [Concomitant]
     Active Substance: HYDROCHLOROTHIAZIDE
     Indication: PRODUCT USED FOR UNKNOWN INDICATION
     Route: 065
  5. PRAVASTATIN 20 MG [Concomitant]
     Active Substance: PRAVASTATIN
     Indication: PRODUCT USED FOR UNKNOWN INDICATION
     Route: 065

REACTIONS (1)
  - Drug ineffective [Unknown]
